FAERS Safety Report 13021603 (Version 2)
Quarter: 2016Q4

REPORT INFORMATION
  Report Type: Spontaneous
  Country: AR (occurrence: AR)
  Receive Date: 20161213
  Receipt Date: 20161220
  Transmission Date: 20170207
  Serious: Yes (Death)
  Sender: FDA-Public Use
  Company Number: AR-ASTRAZENECA-2016SF30095

PATIENT
  Age: 82 Year
  Sex: Male

DRUGS (3)
  1. ZOLADEX [Suspect]
     Active Substance: GOSERELIN ACETATE
     Indication: PROSTATE CANCER
     Dosage: UNKNOWN
     Route: 058
     Dates: start: 201509
  2. CASODEX [Suspect]
     Active Substance: BICALUTAMIDE
     Indication: PROSTATE CANCER
     Route: 048
     Dates: start: 201509
  3. MORPHINE [Concomitant]
     Active Substance: MORPHINE
     Indication: PAIN

REACTIONS (1)
  - Malignant neoplasm progression [Fatal]

NARRATIVE: CASE EVENT DATE: 20160217
